FAERS Safety Report 6354039-X (Version None)
Quarter: 2009Q3

REPORT INFORMATION
  Report Type: 
  Country: None (occurrence: None)
  Receive Date: 20090914
  Receipt Date: 20090903
  Transmission Date: 20100115
  Serious: No
  Sender: FDA-Public Use
  Company Number: US-SOLVAY-00209005056

PATIENT
  Age: 7 Year
  Sex: Male
  Weight: 52.2 kg

DRUGS (5)
  1. SINGULAIR [Concomitant]
     Indication: SEASONAL ALLERGY
     Dosage: DAILY DOSE:  UNKNOWN
     Route: 048
  2. ANDROGEL [Suspect]
     Indication: ACCIDENTAL EXPOSURE
     Dosage: DAILY DOSE:  UNKNOWN
     Route: 062
     Dates: start: 20060101, end: 20081101
  3. ALLEGRA [Concomitant]
     Indication: SEASONAL ALLERGY
     Dosage: DAILY DOSE:  UNKNOWN
     Route: 048
  4. ANDRODERM [Suspect]
     Indication: DRUG USE FOR UNKNOWN INDICATION
     Dosage: DAILY DOSE:  UNKNOWN, FORM: PATCH
     Route: 065
  5. EPIPEN [Concomitant]
     Indication: FOOD ALLERGY
     Dosage: DAILY DOSE:  UNKNOWN, FREQUENCY: AS NEEDED.
     Route: 065

REACTIONS (3)
  - BLOOD TESTOSTERONE INCREASED [None]
  - HIRSUTISM [None]
  - X-RAY ABNORMAL [None]
